FAERS Safety Report 7322202-7 (Version None)
Quarter: 2011Q1

REPORT INFORMATION
  Report Type: 
  Country: None (occurrence: None)
  Receive Date: 20110228
  Receipt Date: 20110223
  Transmission Date: 20110831
  Serious: Yes (Other)
  Sender: FDA-Public Use
  Company Number: DE-BRISTOL-MYERS SQUIBB COMPANY-15475601

PATIENT
  Age: 42 Year
  Sex: Female
  Weight: 75 kg

DRUGS (3)
  1. REYATAZ [Suspect]
     Indication: HIV INFECTION
     Route: 048
     Dates: start: 20091201, end: 20110101
  2. TRUVADA [Suspect]
     Indication: HIV INFECTION
     Dosage: 1 DF= 200MG/245 MG
     Route: 048
     Dates: start: 20081101
  3. NORVIR [Suspect]
     Indication: HIV INFECTION
     Dates: start: 20091201

REACTIONS (1)
  - CUBITAL TUNNEL SYNDROME [None]
